FAERS Safety Report 6311041-1 (Version None)
Quarter: 2009Q3

REPORT INFORMATION
  Report Type: 
  Country: None (occurrence: None)
  Receive Date: 20090817
  Receipt Date: 20090807
  Transmission Date: 20100115
  Serious: Yes (Other)
  Sender: FDA-Public Use
  Company Number: FR-ELI_LILLY_AND_COMPANY-FR200908001412

PATIENT
  Sex: Female

DRUGS (17)
  1. UMULINE [Suspect]
     Indication: DIABETES MELLITUS
     Dosage: UNK, UNKNOWN
     Route: 042
     Dates: start: 20090604, end: 20090606
  2. APROVEL [Concomitant]
     Dosage: UNK, UNKNOWN
     Route: 048
     Dates: start: 20090605
  3. LASIX [Concomitant]
     Indication: RENAL DISORDER
     Dosage: 20 MG, UNKNOWN
     Route: 065
     Dates: start: 20090604, end: 20090606
  4. HALDOL [Concomitant]
     Indication: AGITATION
     Dosage: UNK, UNKNOWN
     Route: 042
     Dates: start: 20090605, end: 20090605
  5. CALCIPARINE [Concomitant]
     Indication: THROMBOSIS PROPHYLAXIS
     Dosage: UNK, UNKNOWN
     Route: 058
     Dates: start: 20090604, end: 20090606
  6. NOCTAMIDE [Concomitant]
     Dosage: UNK, UNKNOWN
     Route: 048
     Dates: start: 20090605
  7. TAHOR [Concomitant]
     Dosage: UNK, UNKNOWN
     Route: 048
     Dates: start: 20090605
  8. LERCAN [Concomitant]
     Dosage: UNK, UNKNOWN
     Route: 048
     Dates: start: 20090605
  9. LANTUS [Concomitant]
     Dosage: UNK, UNKNOWN
     Route: 065
  10. NOVORAPID [Concomitant]
     Dosage: UNK, UNKNOWN
     Route: 065
  11. PROPOFOL [Concomitant]
     Dosage: UNK, UNKNOWN
     Route: 065
  12. MORPHINE [Concomitant]
     Indication: PAIN
     Dosage: UNK, UNKNOWN
     Route: 065
     Dates: start: 20090604, end: 20090605
  13. ACETAMINOPHEN [Concomitant]
     Indication: PAIN
     Dosage: UNK, UNKNOWN
     Route: 065
     Dates: start: 20090604
  14. NICARDIPINE HCL [Concomitant]
     Indication: BLOOD PRESSURE
     Dosage: UNK, UNKNOWN
     Route: 065
     Dates: end: 20090605
  15. RIVOTRIL [Concomitant]
     Indication: CONVULSION
     Dosage: 1 MG, UNKNOWN
     Route: 065
  16. NEXIUM [Concomitant]
     Dosage: UNK, UNKNOWN
     Route: 048
     Dates: start: 20090605
  17. DAFALGAN [Concomitant]
     Dosage: UNK, UNKNOWN
     Route: 048
     Dates: start: 20090605

REACTIONS (2)
  - AGITATION [None]
  - THROMBOCYTOPENIA [None]
